FAERS Safety Report 6255848-8 (Version None)
Quarter: 2009Q3

REPORT INFORMATION
  Report Type: 
  Country: None (occurrence: None)
  Receive Date: 20090703
  Receipt Date: 20090626
  Transmission Date: 20100115
  Serious: Yes (Hospitalization, Other)
  Sender: FDA-Public Use
  Company Number: US-ALLERGAN-0909078US

PATIENT
  Age: 82 Year
  Sex: Female

DRUGS (6)
  1. COMBIGAN [Suspect]
     Indication: GLAUCOMA
     Dosage: 1 GTT, BID
     Route: 047
     Dates: start: 20081201, end: 20090625
  2. COMBIGAN [Suspect]
     Dosage: 1 GTT, BID
     Route: 047
     Dates: start: 20090629
  3. LISINOPRIL [Concomitant]
     Indication: HYPERTENSION
  4. HYDROCHLOROTHIAZIDE [Concomitant]
     Dosage: 5 MG, QD
  5. PROZAC [Concomitant]
     Dosage: 20 MG, QD
  6. ASPIRIN [Concomitant]
     Dosage: Q3DAYS

REACTIONS (2)
  - BLOOD PRESSURE FLUCTUATION [None]
  - DEHYDRATION [None]
